FAERS Safety Report 7764725-2 (Version None)
Quarter: 2011Q3

REPORT INFORMATION
  Report Type: 
  Country: None (occurrence: None)
  Receive Date: 20110916
  Receipt Date: 20110902
  Transmission Date: 20111222
  Serious: Yes (Hospitalization)
  Sender: FDA-Public Use
  Company Number: BE-20110015

PATIENT
  Age: 38 Year
  Sex: Female

DRUGS (2)
  1. HEXABRIX [Suspect]
     Indication: ARTHROGRAM
     Dosage: 20 ML (20 ML, 1 IN 1 TOTAL)
     Route: 042
  2. BREXINE (PIROXICAM) [Suspect]
     Indication: PRODUCT USED FOR UNKNOWN INDICATION

REACTIONS (4)
  - DYSPNOEA [None]
  - SUFFOCATION FEELING [None]
  - RASH MACULO-PAPULAR [None]
  - URTICARIA [None]
